FAERS Safety Report 9712133 (Version 1)
Quarter: 2013Q4

REPORT INFORMATION
  Report Type: Spontaneous
  Country: CA (occurrence: CA)
  Receive Date: 20131126
  Receipt Date: 20131126
  Transmission Date: 20140711
  Serious: Yes (Other)
  Sender: FDA-Public Use
  Company Number: CA-B.I. PHARMACEUTICALS,INC./RIDGEFIELD-2013-BI-38511CN

PATIENT
  Sex: Male

DRUGS (2)
  1. PRADAX [Suspect]
  2. PRADAX [Suspect]
     Route: 065

REACTIONS (9)
  - Arthritis [Unknown]
  - Gait disturbance [Unknown]
  - Immobile [Unknown]
  - Joint stiffness [Unknown]
  - Joint swelling [Unknown]
  - Oedema peripheral [Unknown]
  - Pain in extremity [Unknown]
  - Walking aid user [Unknown]
  - Weight decreased [Unknown]
